FAERS Safety Report 25680216 (Version 1)
Quarter: 2025Q3

REPORT INFORMATION
  Report Type: Report from Study
  Country: US (occurrence: US)
  Receive Date: 20250814
  Receipt Date: 20250814
  Transmission Date: 20251021
  Serious: No
  Sender: SUNOVION
  Company Number: US-SUMITOMO PHARMA SWITZERLAND GMBH-2025SPA007287

PATIENT
  Age: 83 Year
  Sex: Male

DRUGS (18)
  1. ORGOVYX [Suspect]
     Active Substance: RELUGOLIX
     Indication: Prostate cancer
     Dosage: 360 MG, SINGLE
     Route: 048
  2. ORGOVYX [Suspect]
     Active Substance: RELUGOLIX
     Dosage: 120 MG, QD
     Route: 048
     Dates: start: 20250401
  3. METAMUCIL [Concomitant]
     Active Substance: PLANTAGO SEED
  4. ONDANSETRON [Concomitant]
     Active Substance: ONDANSETRON
  5. RESTASIS [Concomitant]
     Active Substance: CYCLOSPORINE
  6. TAMSULOSIN HYDROCHLORIDE [Concomitant]
     Active Substance: TAMSULOSIN HYDROCHLORIDE
  7. TYLENOL [Concomitant]
     Active Substance: ACETAMINOPHEN
  8. CEPHALEXIN [Concomitant]
     Active Substance: CEPHALEXIN
  9. ASPIRIN [Concomitant]
     Active Substance: ASPIRIN
  10. CELEBREX [Concomitant]
     Active Substance: CELECOXIB
  11. CIALIS [Concomitant]
     Active Substance: TADALAFIL
  12. COLACE [Concomitant]
     Active Substance: DOCUSATE SODIUM
  13. HYDRALAZINE [Concomitant]
     Active Substance: HYDRALAZINE HYDROCHLORIDE
  14. B12 [Concomitant]
  15. HYDRAZINE SULFATE [Concomitant]
     Active Substance: HYDRAZINE SULFATE
  16. FLONASE [Concomitant]
     Active Substance: FLUTICASONE PROPIONATE
  17. METHOCARBAMOL [Concomitant]
     Active Substance: METHOCARBAMOL
  18. METHYLPREDNISOLONE [Concomitant]
     Active Substance: METHYLPREDNISOLONE

REACTIONS (8)
  - Dental care [Unknown]
  - Somnolence [Unknown]
  - Hypoaesthesia [Unknown]
  - Back disorder [Unknown]
  - Blood glucose increased [Unknown]
  - Hot flush [Unknown]
  - Fatigue [Unknown]
  - Product dose omission issue [Unknown]
